FAERS Safety Report 15021020 (Version 1)
Quarter: 2018Q2

REPORT INFORMATION
  Report Type: Spontaneous
  Country: US (occurrence: US)
  Receive Date: 20180618
  Receipt Date: 20180618
  Transmission Date: 20180711
  Serious: Yes (Other)
  Sender: FDA-Public Use
  Company Number: PHEH2018US023302

PATIENT
  Age: 2 Year
  Sex: Male
  Weight: 18.9 kg

DRUGS (3)
  1. PREDNISONE. [Suspect]
     Active Substance: PREDNISONE
     Indication: ROSAI-DORFMAN SYNDROME
     Dosage: 2 MG/KG, UNK
     Route: 065
  2. METHOTREXATE. [Suspect]
     Active Substance: METHOTREXATE
     Indication: ROSAI-DORFMAN SYNDROME
     Dosage: UNK UNK, QW
     Route: 048
     Dates: start: 20180308
  3. 6 MP [Suspect]
     Active Substance: MERCAPTOPURINE
     Indication: ROSAI-DORFMAN SYNDROME
     Dosage: UNK UNK, QD
     Route: 065
     Dates: start: 20180308

REACTIONS (7)
  - Weight decreased [Unknown]
  - Night sweats [Unknown]
  - Lymphadenopathy [Unknown]
  - Choking [Unknown]
  - Therapy non-responder [Unknown]
  - Concomitant disease aggravated [Unknown]
  - Eating disorder [Unknown]
